FAERS Safety Report 9018928 (Version 3)
Quarter: 2014Q1

REPORT INFORMATION
  Report Type: Spontaneous
  Country: US (occurrence: US)
  Receive Date: 20130118
  Receipt Date: 20140219
  Transmission Date: 20141002
  Serious: Yes (Hospitalization, Other)
  Sender: FDA-Public Use
  Company Number: CHPA2013US000863

PATIENT
  Age: 70 Year
  Sex: Male

DRUGS (6)
  1. EXCEDRIN EXTRA STRENGTH [Suspect]
     Indication: HEADACHE
     Dosage: 2 TO 3 DF, UNK
     Route: 048
     Dates: start: 1960
  2. EXCEDRIN MIGRAINE [Suspect]
     Indication: HEADACHE
     Dosage: 2 DF, UNK
  3. EXCEDRIN MIGRAINE [Suspect]
     Indication: OFF LABEL USE
  4. MAALOX ANTACID WITH ANTI-GAS [Concomitant]
     Indication: GASTROOESOPHAGEAL REFLUX DISEASE
     Dosage: 6 TSP, PRN
     Route: 048
  5. BAYER ASPIRIN [Concomitant]
     Indication: ANTICOAGULANT THERAPY
     Dosage: 81 MG, QD
     Route: 048
  6. DRUG THERAPY NOS [Concomitant]
     Indication: HEADACHE
     Dosage: UNK, UNK
     Route: 048

REACTIONS (9)
  - Pain in extremity [Recovered/Resolved]
  - Fall [Recovered/Resolved]
  - Incorrect dose administered [Unknown]
  - Wrong technique in drug usage process [Unknown]
  - Foreign body [Recovered/Resolved]
  - Arterial occlusive disease [Recovered/Resolved]
  - Osteomyelitis [Recovered/Resolved]
  - Limb injury [Recovered/Resolved]
  - Contusion [Recovered/Resolved]
